FAERS Safety Report 7330117-3 (Version None)
Quarter: 2011Q1

REPORT INFORMATION
  Report Type: 
  Country: None (occurrence: None)
  Receive Date: 20110303
  Receipt Date: 20110216
  Transmission Date: 20110831
  Serious: Yes (Disabling, Other)
  Sender: FDA-Public Use
  Company Number: BR-BAYER-200820908LA

PATIENT
  Sex: Female

DRUGS (8)
  1. BETAFERON [Suspect]
     Indication: ARTHRALGIA
     Dosage: 9.6 MIU, QOD
     Route: 058
     Dates: start: 20080201
  2. GABAPENTIN [Concomitant]
     Indication: INFLAMMATION
     Dosage: 3 DF, QD
     Route: 048
     Dates: start: 20070101
  3. AMANTADINE HCL [Concomitant]
     Indication: OPTIC NEURITIS
     Route: 048
     Dates: start: 20081201
  4. BETAFERON [Suspect]
     Dosage: 9.6 MIU, QOD
     Route: 058
  5. GABAPENTIN [Concomitant]
     Indication: NEURALGIA
     Route: 048
     Dates: start: 20060101
  6. BETAFERON [Suspect]
     Dosage: 8 MIU, QOD
     Route: 058
     Dates: start: 20080401
  7. GABAPENTIN [Concomitant]
     Indication: ARTHRALGIA
     Dosage: 4 DF, QID
     Route: 048
     Dates: start: 20070101
  8. GABAPENTIN [Concomitant]
     Indication: PAIN
     Dosage: 6 DF, QD
     Route: 048
     Dates: start: 20070101

REACTIONS (27)
  - INJECTION SITE PAIN [None]
  - MULTIPLE SCLEROSIS RELAPSE [None]
  - HYPOAESTHESIA FACIAL [None]
  - VISION BLURRED [None]
  - FIBROMYALGIA [None]
  - HYPOAESTHESIA [None]
  - EYE PAIN [None]
  - OPTIC NEURITIS [None]
  - JOINT LOCK [None]
  - BLINDNESS UNILATERAL [None]
  - NASAL CONGESTION [None]
  - HEADACHE [None]
  - PAIN [None]
  - INFLUENZA [None]
  - PRODUCTIVE COUGH [None]
  - HYPERAESTHESIA [None]
  - PRURITUS [None]
  - INJECTION SITE HAEMATOMA [None]
  - COLOUR BLINDNESS [None]
  - BLOOD PRESSURE DECREASED [None]
  - DEPRESSION [None]
  - MUSCLE SPASMS [None]
  - VISUAL ACUITY REDUCED [None]
  - DYSPNOEA [None]
  - MULTIPLE SCLEROSIS [None]
  - NEURALGIA [None]
  - SYNCOPE [None]
